FAERS Safety Report 5312241-X (Version None)
Quarter: 2007Q2

REPORT INFORMATION
  Report Type: 
  Country: None (occurrence: None)
  Receive Date: 20070430
  Receipt Date: 20060531
  Transmission Date: 20071010
  Serious: No
  Sender: FDA-Public Use
  Company Number: 2006UW10453

PATIENT
  Age: 50 Year
  Sex: Female
  Weight: 61.2 kg

DRUGS (3)
  1. NEXIUM [Suspect]
     Indication: OESOPHAGEAL ULCER
     Route: 048
  2. ALLEGRA [Concomitant]
  3. SUDAFED 12 HOUR [Concomitant]

REACTIONS (2)
  - BACK PAIN [None]
  - FLATULENCE [None]
